FAERS Safety Report 7904135 (Version 10)
Quarter: 2018Q4

REPORT INFORMATION
  Report Type: Spontaneous
  Country: BR (occurrence: BR)
  Receive Date: 20110419
  Receipt Date: 20181204
  Transmission Date: 20190205
  Serious: Yes (Other)
  Sender: FDA-Public Use
  Company Number: BR-PFIZER INC-2011081466

PATIENT
  Age: 63 Year
  Sex: Female
  Weight: 84 kg

DRUGS (7)
  1. XALATAN [Suspect]
     Active Substance: LATANOPROST
     Dosage: 3 UG, 1X/DAY (ONE DROP EACH EYE (1.5UG EACH EYE)
     Route: 047
     Dates: start: 2009
  2. LATANOPROST. [Suspect]
     Active Substance: LATANOPROST
     Dosage: UNK
     Dates: start: 201206
  3. TENORETIC [Concomitant]
     Active Substance: ATENOLOL\CHLORTHALIDONE
     Indication: ARRHYTHMIA
  4. XALACOM [Suspect]
     Active Substance: LATANOPROST\TIMOLOL MALEATE
     Dosage: UNK
     Route: 047
  5. TENORETIC [Concomitant]
     Active Substance: ATENOLOL\CHLORTHALIDONE
     Indication: HYPERTENSION
     Dosage: 1 DF, 1X/DAY (IN THE MORNING)
     Dates: start: 2001
  6. XALATAN [Suspect]
     Active Substance: LATANOPROST
     Indication: GLAUCOMA
     Dosage: 3 UG, 1X/DAY (ONE DROP EACH EYE (1.5UG EACH EYE)
     Route: 047
     Dates: start: 2009
  7. XALATAN [Suspect]
     Active Substance: LATANOPROST
     Dosage: ONE DROP IN EACH EYE PER DAY
     Dates: start: 2012

REACTIONS (23)
  - Erythema [Not Recovered/Not Resolved]
  - Headache [Recovered/Resolved]
  - Psoriasis [Unknown]
  - Product dose omission [Recovered/Resolved]
  - Nervousness [Not Recovered/Not Resolved]
  - Product complaint [Recovered/Resolved]
  - Neck injury [Not Recovered/Not Resolved]
  - Peripheral swelling [Recovered/Resolved]
  - Insomnia [Recovered/Resolved]
  - Skin discolouration [Not Recovered/Not Resolved]
  - Skin wound [Not Recovered/Not Resolved]
  - Pain in extremity [Recovered/Resolved]
  - Product dispensing error [Recovered/Resolved]
  - Bedridden [Not Recovered/Not Resolved]
  - Malaise [Not Recovered/Not Resolved]
  - Arthropathy [Recovered/Resolved]
  - Hypertension [Not Recovered/Not Resolved]
  - Ocular hyperaemia [Not Recovered/Not Resolved]
  - Gait inability [Recovered/Resolved]
  - Eye pruritus [Not Recovered/Not Resolved]
  - Hypersensitivity [Not Recovered/Not Resolved]
  - Neovascular age-related macular degeneration [Recovered/Resolved]
  - Head discomfort [Recovered/Resolved]

NARRATIVE: CASE EVENT DATE: 200907
